FAERS Safety Report 13147580 (Version 1)
Quarter: 2017Q1

REPORT INFORMATION
  Report Type: Spontaneous
  Country: HR (occurrence: HR)
  Receive Date: 20170125
  Receipt Date: 20170125
  Transmission Date: 20170428
  Serious: Yes (Hospitalization)
  Sender: FDA-Public Use
  Company Number: HR-ROCHE-1884055

PATIENT
  Age: 33 Year
  Sex: Male

DRUGS (4)
  1. SEROXAT [Suspect]
     Active Substance: PAROXETINE HYDROCHLORIDE
     Indication: PRODUCT USED FOR UNKNOWN INDICATION
     Route: 048
     Dates: start: 20161016
  2. NORMABEL [Concomitant]
     Active Substance: DIAZEPAM
     Route: 048
  3. OLANDIX [Suspect]
     Active Substance: OLANZAPINE
     Indication: PRODUCT USED FOR UNKNOWN INDICATION
     Dosage: TABLETS, TONGUE SOLUBLE
     Route: 048
     Dates: start: 20161016
  4. RIVOTRIL [Suspect]
     Active Substance: CLONAZEPAM
     Indication: PRODUCT USED FOR UNKNOWN INDICATION
     Dosage: 10X 0,2
     Route: 048
     Dates: start: 20161016

REACTIONS (6)
  - Suicide attempt [Unknown]
  - Intentional overdose [Unknown]
  - Chest pain [Unknown]
  - Poisoning deliberate [None]
  - Intentional overdose [None]
  - Somnolence [Unknown]

NARRATIVE: CASE EVENT DATE: 20161016
